FAERS Safety Report 7301285-4 (Version None)
Quarter: 2011Q1

REPORT INFORMATION
  Report Type: 
  Country: None (occurrence: None)
  Receive Date: 20110112
  Receipt Date: 20091103
  Transmission Date: 20110831
  Serious: Yes (Other)
  Sender: FDA-Public Use
  Company Number: THYM-1001222

PATIENT
  Age: 44 Year
  Sex: Male
  Weight: 67.1 kg

DRUGS (30)
  1. MANNITOL [Concomitant]
  2. PROMETHAZINE [Concomitant]
  3. HEPARIN [Concomitant]
  4. THYMOGLOBULIN [Suspect]
  5. NALOXONE [Concomitant]
  6. HYDROMORPHONE (HYDROMORPHONE) [Concomitant]
  7. ONDANSETRON [Concomitant]
  8. MYCOPHENOLATE MOFETIL [Concomitant]
  9. NYSTATIN [Concomitant]
  10. PARICALCITOL (PARICALCITOL) [Concomitant]
  11. BACTRIM [Concomitant]
  12. THYMOGLOBULIN [Suspect]
     Indication: PROPHYLAXIS AGAINST TRANSPLANT REJECTION
     Dosage: 150 MG, QD, INTRAVENOUS
     Route: 042
     Dates: start: 20090926, end: 20090930
  13. DOPAMINE HCL [Concomitant]
  14. EPOETIN ALFA (EPOETIN ALFA) [Concomitant]
  15. SODIUM BICARBONATE IN PLASTIC CONTAINER [Concomitant]
  16. FUROSEMIDE [Concomitant]
  17. MULTIVITAMIN [Concomitant]
  18. INSULIN (INSULIN) [Concomitant]
  19. METOPROLOL (METOPROLOL) [Concomitant]
  20. ASPIRIN [Concomitant]
  21. POLYETHYLENE GLYCOL [Concomitant]
  22. SENNA LAX (SENNOSIDE A+B) [Concomitant]
  23. SODIUM CHLORIDE 0.9% [Concomitant]
  24. TACROLIMUS [Concomitant]
  25. CEFOTETAN [Concomitant]
  26. MAGNESIUM SULFATE [Concomitant]
  27. NICOTINE [Concomitant]
  28. METHYLPREDNISOLONE [Concomitant]
  29. MYCOPHENOLATE MOFETIL [Concomitant]
  30. ESOMEPRAZOLE (ESOMEPRAZOLE) [Concomitant]

REACTIONS (1)
  - THROMBOCYTOPENIA [None]
